FAERS Safety Report 5308624-4 (Version None)
Quarter: 2007Q2

REPORT INFORMATION
  Report Type: 
  Country: None (occurrence: None)
  Receive Date: 20070426
  Receipt Date: 20070416
  Transmission Date: 20071010
  Serious: Yes (Hospitalization)
  Sender: FDA-Public Use
  Company Number: FR-AVENTIS-200711380FR

PATIENT
  Age: 74 Year
  Sex: Male

DRUGS (9)
  1. AMARYL [Suspect]
     Indication: DIABETES MELLITUS
     Route: 048
  2. XANAX [Suspect]
     Indication: ANXIETY
     Route: 048
  3. ANAFRANIL [Suspect]
     Indication: DEPRESSION
     Route: 048
  4. GLUCOPHAGE [Suspect]
     Indication: DIABETES MELLITUS
     Route: 048
  5. LIPANTHYL [Suspect]
     Indication: HYPERLIPIDAEMIA
     Route: 048
  6. OGAST [Suspect]
     Indication: DRUG USE FOR UNKNOWN INDICATION
     Route: 048
  7. KARDEGIC                           /00002703/ [Concomitant]
     Indication: DRUG USE FOR UNKNOWN INDICATION
     Route: 048
  8. URBANYL [Concomitant]
     Indication: DRUG USE FOR UNKNOWN INDICATION
     Route: 048
  9. TRANSIPEG                          /00754501/ [Concomitant]
     Indication: DRUG USE FOR UNKNOWN INDICATION
     Route: 048

REACTIONS (2)
  - ECZEMA [None]
  - PRURITUS [None]
